FAERS Safety Report 4810411-8 (Version None)
Quarter: 2005Q4

REPORT INFORMATION
  Report Type: 
  Country: None (occurrence: None)
  Receive Date: 20051025
  Receipt Date: 20051025
  Transmission Date: 20060501
  Serious: Yes (Other)
  Sender: FDA-Public Use
  Company Number: None

PATIENT
  Age: 73 Year
  Sex: Male
  Weight: 123.4 kg

DRUGS (13)
  1. PAROXETINE HCL [Suspect]
  2. METOPROLOL TARTRATE [Concomitant]
  3. DOCUSATE [Concomitant]
  4. FUROSEMIDE [Concomitant]
  5. RAMIPRIL [Concomitant]
  6. ISOSORBIDE MONONITRATE [Concomitant]
  7. IPRATROPIUM BROMIDE [Concomitant]
  8. FLUNISOLIDE [Concomitant]
  9. COUMADIN [Concomitant]
  10. NITROGLYCERIN [Concomitant]
  11. ASPIRIN [Concomitant]
  12. ALBUTEROL [Concomitant]
  13. MELOXICAM [Concomitant]

REACTIONS (1)
  - TREMOR [None]
